FAERS Safety Report 12328417 (Version 1)
Quarter: 2016Q2

REPORT INFORMATION
  Report Type: Spontaneous
  Country: US (occurrence: US)
  Receive Date: 20160503
  Receipt Date: 20160503
  Transmission Date: 20160815
  Serious: No
  Sender: FDA-Public Use
  Company Number: US-BEH-2014044344

PATIENT
  Age: 53 Year
  Sex: Male

DRUGS (20)
  1. HIZENTRA [Suspect]
     Active Substance: HUMAN IMMUNOGLOBULIN G
     Indication: AUTOIMMUNE DISORDER
     Dosage: JAN-2014; 10 GM WEEKLY
     Route: 058
  2. PHENERGAN [Concomitant]
     Active Substance: PROMETHAZINE HYDROCHLORIDE
     Indication: NAUSEA
     Dosage: EVERY 6 HOURS AS NEEDED
     Route: 048
  3. EXFORGE [Concomitant]
     Active Substance: AMLODIPINE BESYLATE\VALSARTAN
     Dosage: 5-320 MG; ONCE DAILY
     Route: 048
  4. LIDODERM [Concomitant]
     Active Substance: LIDOCAINE
     Indication: PAIN
     Dosage: 5% PATCH FOR 12 HOURS ADAY
     Route: 062
  5. IBUPROFEN. [Concomitant]
     Active Substance: IBUPROFEN
     Indication: PAIN
     Dosage: ONE UP TO THREE TIMES A DAY
     Route: 048
  6. NASACORT [Concomitant]
     Active Substance: TRIAMCINOLONE ACETONIDE
     Dosage: 2 SPRAYS EACH NOSTRIL DAILY
     Route: 045
  7. TYLENOL WITH CODEINE [Concomitant]
     Active Substance: ACETAMINOPHEN\CODEINE PHOSPHATE
     Indication: ARTHRITIS
     Dosage: 300-30 MG; ONE OR TWO UP TO 3 TIMES A DAY
     Route: 048
  8. ATROVENT [Concomitant]
     Active Substance: IPRATROPIUM BROMIDE
     Indication: UPPER-AIRWAY COUGH SYNDROME
     Dosage: 0.06% SOLN; 1 SPRAY EACH NOSTRIL EVERY 4 HOURS AS NEEDED
     Route: 045
  9. CIALIS [Concomitant]
     Active Substance: TADALAFIL
     Route: 048
  10. EPIPEN [Concomitant]
     Active Substance: EPINEPHRINE
     Dosage: AS DIRECTED
  11. FLEXERIL [Concomitant]
     Active Substance: CYCLOBENZAPRINE HYDROCHLORIDE
     Indication: MUSCLE SPASMS
     Dosage: 1 TABLET TID AS NEEDED
     Route: 048
  12. HIZENTRA [Suspect]
     Active Substance: HUMAN IMMUNOGLOBULIN G
     Indication: ANTIBODY TEST ABNORMAL
     Dosage: 50 ML; STARTED IN 2006; 10 GM WEEKLY
     Route: 058
  13. HIZENTRA [Suspect]
     Active Substance: HUMAN IMMUNOGLOBULIN G
     Route: 058
  14. SOMA [Concomitant]
     Active Substance: CARISOPRODOL
     Indication: MUSCLE SPASMS
     Dosage: ONE UP TO THREE TIMES DAILY
     Route: 048
  15. SOMA [Concomitant]
     Active Substance: CARISOPRODOL
     Indication: MUSCLE SPASMS
     Dosage: ONE UP TO THREE TIMES DAILY
     Route: 048
  16. MS CONTIN [Concomitant]
     Active Substance: MORPHINE SULFATE
     Indication: PAIN
     Dosage: EVERY 12 HOURS AS NEEDED
     Route: 048
  17. AXIRON [Concomitant]
     Active Substance: TESTOSTERONE
     Dosage: 2 PUMPS DAILY (60 MG T)
  18. CYMBALTA [Concomitant]
     Active Substance: DULOXETINE HYDROCHLORIDE
     Dosage: 30 MG
  19. DURAGESIC 25 [Concomitant]
     Indication: BACK PAIN
     Dosage: 25 MCG ONE EVERY THREE DAYS
  20. AZITHROMYCIN ANHYDROUS. [Concomitant]
     Active Substance: AZITHROMYCIN ANHYDROUS
     Dosage: TWO TABS X1 DAY THEN ONE TAB DAILY FOR FOUR DAYS FOR 4 DAYS
     Route: 048

REACTIONS (5)
  - Malaise [Recovered/Resolved]
  - Fatigue [Recovered/Resolved]
  - Sluggishness [Recovered/Resolved]
  - Somnolence [Recovered/Resolved]
  - Cough [Recovered/Resolved]

NARRATIVE: CASE EVENT DATE: 201401
